FAERS Safety Report 8480108-4 (Version None)
Quarter: 2012Q2

REPORT INFORMATION
  Report Type: 
  Country: None (occurrence: None)
  Receive Date: 20120629
  Receipt Date: 20120618
  Transmission Date: 20120825
  Serious: Yes (Other)
  Sender: FDA-Public Use
  Company Number: BR-ELI_LILLY_AND_COMPANY-BR201206005921

PATIENT
  Sex: Female

DRUGS (1)
  1. CYMBALTA [Suspect]
     Indication: DEPRESSION
     Dosage: 60 MG, UNKNOWN
     Route: 048
     Dates: start: 20120615

REACTIONS (7)
  - EMOTIONAL DISORDER [None]
  - DYSPNOEA [None]
  - TACHYCARDIA [None]
  - DEPRESSION [None]
  - EMOTIONAL DISTRESS [None]
  - FEELING ABNORMAL [None]
  - TREMOR [None]
